FAERS Safety Report 8969814 (Version 1)
Quarter: 2012Q4

REPORT INFORMATION
  Report Type: 
  Country: GB (occurrence: GB)
  Receive Date: 20121217
  Receipt Date: 20121217
  Transmission Date: 20130627
  Serious: Yes (Hospitalization)
  Sender: FDA-Public Use
  Company Number: GB-009507513-1212GBR004941

PATIENT
  Age: 86 Year
  Sex: Female

DRUGS (3)
  1. LOSARTAN POTASSIUM [Suspect]
     Indication: HYPERTENSION
     Dosage: UNK
     Route: 048
  2. TRAMADOL HYDROCHLORIDE [Suspect]
     Dosage: UNK
  3. INDAPAMIDE [Suspect]
     Indication: HYPERTENSION
     Route: 048

REACTIONS (4)
  - Confusional state [Unknown]
  - Fall [Recovered/Resolved]
  - Dehydration [Unknown]
  - Orthostatic hypotension [Recovered/Resolved]
